FAERS Safety Report 12893310 (Version 1)
Quarter: 2016Q4

REPORT INFORMATION
  Report Type: Spontaneous
  Country: US (occurrence: US)
  Receive Date: 20161028
  Receipt Date: 20161028
  Transmission Date: 20170207
  Serious: No
  Sender: FDA-Public Use
  Company Number: US-BAYER-2016-207281

PATIENT
  Age: 81 Year
  Sex: Male
  Weight: 69.39 kg

DRUGS (2)
  1. MIRALAX [Suspect]
     Active Substance: POLYETHYLENE GLYCOL 3350
     Indication: CONSTIPATION
     Dosage: UNK
     Route: 048
     Dates: start: 20161020
  2. METAMUCIL [Concomitant]
     Active Substance: PLANTAGO SEED

REACTIONS (2)
  - Product use issue [Unknown]
  - Drug ineffective [None]

NARRATIVE: CASE EVENT DATE: 20161020
